FAERS Safety Report 5173274-X (Version None)
Quarter: 2006Q4

REPORT INFORMATION
  Report Type: 
  Country: None (occurrence: None)
  Receive Date: 20061206
  Receipt Date: 20061127
  Transmission Date: 20070319
  Serious: Yes (Death)
  Sender: FDA-Public Use
  Company Number: 200611IM000656

PATIENT
  Age: 73 Year
  Sex: Male
  Weight: 130.1823 kg

DRUGS (18)
  1. ACTIMMUNE [Suspect]
  2. DIGOXIN [Concomitant]
  3. COREG [Concomitant]
  4. COZAAR [Concomitant]
  5. ZOCOR [Concomitant]
  6. ASPIRIN [Concomitant]
  7. MAGNESIUM CHLORIDE [Concomitant]
  8. TRAZODONE HCL [Concomitant]
  9. NEURONTIN [Concomitant]
  10. ALBUTEROL [Concomitant]
  11. ATIVAN [Concomitant]
  12. ADVAIR DISKUS 100/50 [Concomitant]
  13. NEXIUM [Concomitant]
  14. NOVOLOG [Concomitant]
  15. MIRAPEX [Concomitant]
  16. LANTUS [Concomitant]
  17. PAXIL [Concomitant]
  18. NIACIN [Concomitant]

REACTIONS (2)
  - LOSS OF CONSCIOUSNESS [None]
  - MALAISE [None]
